FAERS Safety Report 7711647-9 (Version None)
Quarter: 2011Q3

REPORT INFORMATION
  Report Type: 
  Country: None (occurrence: None)
  Receive Date: 20110826
  Receipt Date: 20110629
  Transmission Date: 20111222
  Serious: No
  Sender: FDA-Public Use
  Company Number: US-BRISTOL-MYERS SQUIBB COMPANY-15863111

PATIENT
  Age: 67 Year
  Sex: Female
  Weight: 57 kg

DRUGS (10)
  1. ATENOLOL [Concomitant]
  2. AMLODIPINE [Concomitant]
  3. CALCIUM CARBONATE [Concomitant]
  4. ASPIRIN [Concomitant]
  5. ONGLYZA [Suspect]
     Dates: start: 20110101
  6. CRESTOR [Concomitant]
  7. LISINOPRIL [Concomitant]
  8. VITAMIN D [Concomitant]
  9. OMEGA [Concomitant]
     Dosage: CO-Q OMEGA
  10. VITAMIN TAB [Concomitant]

REACTIONS (1)
  - BLOOD GLUCOSE INCREASED [None]
